FAERS Safety Report 4290148-7 (Version None)
Quarter: 2004Q1

REPORT INFORMATION
  Report Type: 
  Country: None (occurrence: None)
  Receive Date: 20040206
  Receipt Date: 20040128
  Transmission Date: 20041129
  Serious: Yes (Hospitalization)
  Sender: FDA-Public Use
  Company Number: 2004196978JP

PATIENT
  Age: 63 Year
  Sex: Male

DRUGS (6)
  1. ALDACTONE [Suspect]
     Indication: ASCITES
     Dosage: 25 MG, DAILY, ORAL
     Route: 048
     Dates: start: 20030823, end: 20040122
  2. NIZATIDINE [Concomitant]
  3. ULCERLMIN [Concomitant]
  4. URSO [Concomitant]
  5. SELOKEN [Concomitant]
  6. LASIX [Concomitant]

REACTIONS (1)
  - BLOOD GLUCOSE FLUCTUATION [None]
